FAERS Safety Report 6394691-6 (Version None)
Quarter: 2009Q4

REPORT INFORMATION
  Report Type: 
  Country: None (occurrence: None)
  Receive Date: 20091009
  Receipt Date: 20090928
  Transmission Date: 20100525
  Serious: Yes (Other)
  Sender: FDA-Public Use
  Company Number: PHHY2009BR41855

PATIENT
  Age: 63 Year
  Sex: Female

DRUGS (2)
  1. ACLASTA [Suspect]
     Indication: OSTEOPOROSIS
     Dosage: UNK
     Route: 042
     Dates: start: 20081016
  2. ALENDRONATE SODIUM [Concomitant]
     Indication: MINERAL SUPPLEMENTATION
     Dosage: 1 TABLET ONCE A WEEK
     Route: 048

REACTIONS (7)
  - ACTIVITIES OF DAILY LIVING IMPAIRED [None]
  - ARTHRALGIA [None]
  - BED REST [None]
  - FEELING ABNORMAL [None]
  - PAIN [None]
  - SNEEZING [None]
  - SPINAL DEFORMITY [None]
